FAERS Safety Report 24637832 (Version 1)
Quarter: 2024Q4

REPORT INFORMATION
  Report Type: Spontaneous
  Country: IT (occurrence: IT)
  Receive Date: 20241119
  Receipt Date: 20241119
  Transmission Date: 20250115
  Serious: Yes (Other)
  Sender: SANDOZ
  Company Number: IT-SANDOZ-SDZ2024IT095081

PATIENT
  Age: 58 Year
  Sex: Male

DRUGS (8)
  1. MYCOPHENOLIC ACID [Concomitant]
     Active Substance: MYCOPHENOLIC ACID
     Indication: Product used for unknown indication
     Dosage: 360 MG, BID
     Route: 065
  2. TENOFOVIR [Concomitant]
     Active Substance: TENOFOVIR
     Dosage: 245 MG/48 HOURS
     Route: 065
  3. TENOFOVIR [Concomitant]
     Active Substance: TENOFOVIR
     Indication: Hepatitis B
     Dosage: 245 MG/48 HOURS
     Route: 065
  4. ENTECAVIR [Interacting]
     Active Substance: ENTECAVIR
     Indication: Hepatitis B
     Dosage: 0.5 MG, QW (AS SINGLE DOSE AT THE END OF HEMODIALYSIS SESSION)
     Route: 065
     Dates: start: 2011
  5. ENTECAVIR [Interacting]
     Active Substance: ENTECAVIR
     Dosage: 0.5 MG, QD
     Route: 065
     Dates: start: 2011
  6. ENTECAVIR [Interacting]
     Active Substance: ENTECAVIR
     Dosage: 0.5 MG EVERY 10 DAYS
     Route: 065
     Dates: start: 2011
  7. EVEROLIMUS [Interacting]
     Active Substance: EVEROLIMUS
     Indication: Immunosuppressant drug therapy
     Dosage: 3 ? 8 NG/ML
     Route: 065
  8. TACROLIMUS [Interacting]
     Active Substance: TACROLIMUS
     Indication: Immunosuppressant drug therapy
     Dosage: 4 ? 6 NG/ML
     Route: 065

REACTIONS (4)
  - Hepatitis B [Recovered/Resolved]
  - Renal impairment [Not Recovered/Not Resolved]
  - Drug interaction [Unknown]
  - Drug resistance [Unknown]
